FAERS Safety Report 16766942 (Version 4)
Quarter: 2019Q3

REPORT INFORMATION
  Report Type: Spontaneous
  Country: US (occurrence: US)
  Receive Date: 20190903
  Receipt Date: 20190920
  Transmission Date: 20191005
  Serious: No
  Sender: FDA-Public Use
  Company Number: US-PFIZER INC-2019375651

PATIENT
  Age: 80 Year
  Sex: Female
  Weight: 58.96 kg

DRUGS (2)
  1. LATANOPROST. [Suspect]
     Active Substance: LATANOPROST
     Indication: GLAUCOMA
     Dosage: 125 UG, UNK
     Dates: end: 20190825
  2. LATANOPROST. [Suspect]
     Active Substance: LATANOPROST
     Dosage: 1 GTT, UNK [(1 DROP PER EYE BEFORE BED TIME)]
     Route: 047

REACTIONS (2)
  - Eye irritation [Not Recovered/Not Resolved]
  - Blood pressure increased [Not Recovered/Not Resolved]
